FAERS Safety Report 21191920 (Version 3)
Quarter: 2023Q2

REPORT INFORMATION
  Report Type: Report from Study
  Country: US (occurrence: US)
  Receive Date: 20220809
  Receipt Date: 20230401
  Transmission Date: 20230722
  Serious: No
  Sender: FDA-Public Use
  Company Number: US-NOVARTISTESTPH-NVSC2022US180047

PATIENT
  Sex: Female

DRUGS (1)
  1. COSENTYX [Suspect]
     Active Substance: SECUKINUMAB
     Indication: Psoriatic arthropathy
     Dosage: 150 MG, QW
     Route: 058

REACTIONS (5)
  - Cystitis [Unknown]
  - Herpes zoster [Unknown]
  - Pollakiuria [Unknown]
  - Swelling face [Unknown]
  - Skin burning sensation [Unknown]
